FAERS Safety Report 4690765-6 (Version None)
Quarter: 2005Q2

REPORT INFORMATION
  Report Type: 
  Country: None (occurrence: None)
  Receive Date: 20050613
  Receipt Date: 20050602
  Transmission Date: 20051028
  Serious: Yes (Other)
  Sender: FDA-Public Use
  Company Number: 2005084264

PATIENT
  Age: 64 Year
  Sex: Female

DRUGS (6)
  1. NORVASC [Suspect]
     Indication: BLOOD PRESSURE
     Dosage: 5 MG (5 MG, 1 IN 1 D), ORAL/8 TO 10 YEARS AGO
     Route: 048
  2. NORVASC [Suspect]
     Indication: CARDIAC DISORDER
     Dosage: 5 MG (5 MG, 1 IN 1 D), ORAL/8 TO 10 YEARS AGO
     Route: 048
  3. COUMADIN [Concomitant]
  4. ZESTRIL [Concomitant]
  5. LANOXIN [Concomitant]
  6. NITROGLYCERIN [Concomitant]

REACTIONS (2)
  - CEREBROVASCULAR ACCIDENT [None]
  - EMBOLISM [None]
